FAERS Safety Report 5951922-1 (Version None)
Quarter: 2008Q4

REPORT INFORMATION
  Report Type: 
  Country: None (occurrence: None)
  Receive Date: 20081022
  Receipt Date: 20080710
  Transmission Date: 20090506
  Serious: No
  Sender: FDA-Public Use
  Company Number: ALL1-2008-01974

PATIENT
  Age: 12 Year
  Sex: Male
  Weight: 41.7 kg

DRUGS (5)
  1. VYVANSE [Suspect]
     Indication: ATTENTION DEFICIT/HYPERACTIVITY DISORDER
     Dosage: 70 MG, 1X/DAY:QD, ORAL
     Route: 048
     Dates: start: 20080301
  2. ADVAIR DISKUS 100/50 [Concomitant]
  3. INHALATION GAS [Concomitant]
  4. NASONEX [Concomitant]
  5. ASTELIN /00085801/ (DIPROPHYLLINE) [Concomitant]

REACTIONS (1)
  - THERAPEUTIC RESPONSE DELAYED [None]
